FAERS Safety Report 14650639 (Version 1)
Quarter: 2018Q1

REPORT INFORMATION
  Report Type: Spontaneous
  Country: US (occurrence: US)
  Receive Date: 20180316
  Receipt Date: 20180316
  Transmission Date: 20180509
  Serious: No
  Sender: FDA-Public Use
  Company Number: US-ELI_LILLY_AND_COMPANY-US201803004999

PATIENT
  Sex: Male

DRUGS (2)
  1. TRULICITY [Suspect]
     Active Substance: DULAGLUTIDE
     Indication: PRODUCT USED FOR UNKNOWN INDICATION
     Dosage: 1.5 MG, WEEKLY (1/W)
     Route: 058
     Dates: start: 2016
  2. TRULICITY [Suspect]
     Active Substance: DULAGLUTIDE
     Dosage: 1.5 MG, ONCE PER THREE WEEKS
     Route: 058

REACTIONS (9)
  - Injection site pain [Recovering/Resolving]
  - Pain in extremity [Unknown]
  - Myalgia [Not Recovered/Not Resolved]
  - Inappropriate schedule of drug administration [Not Recovered/Not Resolved]
  - Injection site mass [Recovering/Resolving]
  - Injection site discomfort [Not Recovered/Not Resolved]
  - Injection site infection [Unknown]
  - Limb injury [Recovered/Resolved]
  - Abdominal discomfort [Recovered/Resolved]
